FAERS Safety Report 16500775 (Version 1)
Quarter: 2019Q3

REPORT INFORMATION
  Report Type: Spontaneous
  Country: US (occurrence: US)
  Receive Date: 20190628
  Receipt Date: 20190628
  Transmission Date: 20191004
  Serious: No
  Sender: FDA-Public Use
  Company Number: None

PATIENT
  Age: 8 Year
  Sex: Male
  Weight: 22.5 kg

DRUGS (1)
  1. MONTELUKAST 5MG GENERIC FOR SINGULAIR [Suspect]
     Active Substance: MONTELUKAST SODIUM
     Indication: ASTHMA
     Route: 048

REACTIONS (7)
  - Agitation [None]
  - Anxiety [None]
  - Sleep terror [None]
  - Abnormal dreams [None]
  - Abnormal behaviour [None]
  - Suicidal ideation [None]
  - Disturbance in attention [None]

NARRATIVE: CASE EVENT DATE: 20170101
